FAERS Safety Report 5274141-3 (Version None)
Quarter: 2007Q1

REPORT INFORMATION
  Report Type: 
  Country: None (occurrence: None)
  Receive Date: 20070323
  Receipt Date: 20070315
  Transmission Date: 20070707
  Serious: Yes (Hospitalization, Other)
  Sender: FDA-Public Use
  Company Number: US-ABBOTT-07P-163-0362128-00

PATIENT
  Sex: Female
  Weight: 102.3 kg

DRUGS (4)
  1. SYNTHROID [Suspect]
     Indication: HORMONE SUPPRESSION THERAPY
     Route: 048
     Dates: start: 20030101, end: 20030701
  2. SYNTHROID [Suspect]
     Route: 048
     Dates: start: 20030701, end: 20060301
  3. SYNTHROID [Suspect]
     Route: 048
     Dates: start: 20021201, end: 20021201
  4. ARMOR THYROID [Concomitant]
     Indication: HORMONE SUPPRESSION THERAPY
     Route: 048
     Dates: start: 20060301

REACTIONS (8)
  - ATRIAL FIBRILLATION [None]
  - HAND FRACTURE [None]
  - MUSCLE DISORDER [None]
  - MUSCLE INJURY [None]
  - MUSCLE SPASMS [None]
  - RIB FRACTURE [None]
  - TONGUE DISORDER [None]
  - WRIST FRACTURE [None]
